FAERS Safety Report 23164027 (Version 2)
Quarter: 2023Q4

REPORT INFORMATION
  Report Type: Report from Study
  Country: IT (occurrence: IT)
  Receive Date: 20231109
  Receipt Date: 20231228
  Transmission Date: 20240109
  Serious: Yes (Other)
  Sender: FDA-Public Use
  Company Number: IT-JNJFOC-20230865026

PATIENT
  Age: 64 Year
  Sex: Female

DRUGS (2)
  1. ESKETAMINE [Suspect]
     Active Substance: ESKETAMINE
     Indication: Depression
     Dosage: 7-JUL, 10JUL
     Dates: start: 20230704, end: 20230713
  2. ESKETAMINE [Suspect]
     Active Substance: ESKETAMINE
     Dosage: 21-JUL-2023, 25-JUL-2023,  28JUL2023, 2-AUG-2023, 9-AUG-2023, 16-AUG-2023, 26-AUG-2023, 1-SEP-2023,
     Dates: start: 20230717, end: 20230915

REACTIONS (5)
  - Mental impairment [Recovered/Resolved]
  - Feeling abnormal [Recovered/Resolved]
  - Depersonalisation/derealisation disorder [Recovered/Resolved]
  - Dizziness [Recovered/Resolved]
  - Insomnia [Recovered/Resolved]

NARRATIVE: CASE EVENT DATE: 20230728
